FAERS Safety Report 8669658 (Version 2)
Quarter: 2012Q4

REPORT INFORMATION
  Report Type: 
  Country: US (occurrence: US)
  Receive Date: 20120718
  Receipt Date: 20121101
  Transmission Date: 20130627
  Serious: No
  Sender: FDA-Public Use
  Company Number: US-009507513-1207USA001592

PATIENT
  Age: 57 None
  Sex: Male
  Weight: 79.82 kg

DRUGS (8)
  1. PEGINTRON [Suspect]
     Indication: HEPATITIS C
     Dosage: Redipen
     Route: 058
     Dates: start: 20120630
  2. RIBAVIRIN [Suspect]
     Dosage: 200 mg, UNK
     Route: 048
  3. INCIVEK [Suspect]
     Dosage: 375 mg, (4*42 Tabs)
     Route: 048
  4. HUMULIN R [Concomitant]
     Dosage: 100 IU, UNK
     Route: 058
  5. LISINOPRIL [Concomitant]
     Dosage: 40 mg, UNK
     Route: 048
  6. NOVOLOG [Concomitant]
     Dosage: 100/ML
     Route: 058
  7. ATARAX (HYDROXYZINE HYDROCHLORIDE) [Concomitant]
     Dosage: 10MG/5ML
     Route: 048
  8. HYDROCORTISONE ACETATE [Concomitant]
     Dosage: 0.5 %

REACTIONS (10)
  - Haemorrhoids [Not Recovered/Not Resolved]
  - Dry mouth [Unknown]
  - Oral herpes [Unknown]
  - Fatigue [Unknown]
  - Anaemia [Unknown]
  - Anorectal discomfort [Unknown]
  - Anal haemorrhage [Unknown]
  - Pruritus generalised [Unknown]
  - Weight decreased [Unknown]
  - Anal pruritus [Recovered/Resolved]
